FAERS Safety Report 6669927-4 (Version None)
Quarter: 2010Q2

REPORT INFORMATION
  Report Type: 
  Country: None (occurrence: None)
  Receive Date: 20100406
  Receipt Date: 20100129
  Transmission Date: 20101027
  Serious: No
  Sender: FDA-Public Use
  Company Number: US-ALLERGAN-1000465US

PATIENT
  Age: 58 Year
  Sex: Female
  Weight: 58.957 kg

DRUGS (3)
  1. LATISSE [Suspect]
     Indication: GROWTH OF EYELASHES
     Dosage: 1 GTT, QHS
     Route: 061
     Dates: start: 20090401
  2. LIDOCAINE [Concomitant]
     Indication: LOCAL ANAESTHESIA
     Dosage: 7 %, UNK
     Route: 061
  3. PRILOCAINE HYDROCHLORIDE [Concomitant]
     Indication: LOCAL ANAESTHESIA
     Dosage: 7 %, UNK
     Route: 061

REACTIONS (2)
  - CONTUSION [None]
  - EYELID BLEEDING [None]
